FAERS Safety Report 9515835 (Version 1)
Quarter: 2013Q1

REPORT INFORMATION
  Report Type: Spontaneous
  Country: US (occurrence: None)
  Receive Date: 20130305
  Receipt Date: 20130305
  Transmission Date: 20140127
  Serious: Yes (Other)
  Sender: FDA-Public Use
  Company Number: 163-21880-12012165

PATIENT
  Age: 76 Year
  Sex: Female
  Weight: 76.2 kg

DRUGS (8)
  1. REVLIMID [Suspect]
     Indication: PLASMA CELL MYELOMA
     Dosage: 10 MG, 21/7, PO
     Route: 048
     Dates: start: 201104
  2. VELCADE [Concomitant]
  3. ASA (ACETYLSALICYLIC ACID) [Concomitant]
  4. DEXAMETHASONE [Concomitant]
  5. CALTRATE (CALCIUM CARBONATE) [Concomitant]
  6. POTASSIUM [Concomitant]
  7. AMLODIPINE [Concomitant]
  8. ZOMETA (ZOLEDRONIC ACID) [Concomitant]

REACTIONS (2)
  - Plasma cell myeloma [None]
  - Oedema peripheral [None]
